FAERS Safety Report 9967878 (Version 1)
Quarter: 2014Q1

REPORT INFORMATION
  Report Type: Report from Study
  Country: US (occurrence: US)
  Receive Date: 20140306
  Receipt Date: 20140306
  Transmission Date: 20141002
  Serious: No
  Sender: FDA-Public Use
  Company Number: US-ABBVIE-13P-163-1141190-00

PATIENT
  Age: 64 Year
  Sex: Female
  Weight: 63.11 kg

DRUGS (6)
  1. HUMIRA [Suspect]
     Indication: PSORIASIS
     Dates: start: 20130815
  2. SORIATANE [Concomitant]
     Indication: PSORIASIS
  3. RAMIPRIL [Concomitant]
     Indication: HYPERTENSION
  4. BYSTOLIC [Concomitant]
     Indication: HYPERTENSION
  5. LEXAPRO [Concomitant]
     Indication: DEPRESSION
  6. HYDROCORTISONE [Concomitant]
     Indication: PSORIASIS

REACTIONS (1)
  - Furuncle [Not Recovered/Not Resolved]
